FAERS Safety Report 7970723-6 (Version None)
Quarter: 2011Q4

REPORT INFORMATION
  Report Type: 
  Country: None (occurrence: None)
  Receive Date: 20111212
  Receipt Date: 20111201
  Transmission Date: 20120403
  Serious: Yes (Hospitalization)
  Sender: FDA-Public Use
  Company Number: PHHY2011FR105562

PATIENT
  Sex: Female
  Weight: 65 kg

DRUGS (2)
  1. EXJADE [Suspect]
     Indication: IRON OVERLOAD
     Dosage: 15000 MG, DAILY
     Route: 048
     Dates: start: 20100420
  2. HYDREA [Concomitant]
     Indication: SICKLE CELL ANAEMIA
     Dosage: 2 DF/DAY
     Dates: start: 20101021

REACTIONS (3)
  - VENOUS THROMBOSIS [None]
  - PSYCHIATRIC DECOMPENSATION [None]
  - MANIA [None]
